FAERS Safety Report 22524870 (Version 1)
Quarter: 2023Q2

REPORT INFORMATION
  Report Type: Spontaneous
  Country: US (occurrence: US)
  Receive Date: 20230606
  Receipt Date: 20230606
  Transmission Date: 20230721
  Serious: No
  Sender: FDA-Public Use
  Company Number: US-SANOFI-01638945

PATIENT
  Age: 99 Year
  Sex: Female

DRUGS (4)
  1. NASACORT ALLERGY 24HR [Suspect]
     Active Substance: TRIAMCINOLONE ACETONIDE
     Dosage: UNK
     Route: 065
  2. AZELASTINE [Concomitant]
     Active Substance: AZELASTINE
     Indication: Sneezing
     Dosage: UNK
  3. AZELASTINE [Concomitant]
     Active Substance: AZELASTINE
     Indication: Rhinorrhoea
  4. CHILDREN^S ALLEGRA ALLERGY [Concomitant]
     Active Substance: FEXOFENADINE HYDROCHLORIDE
     Dosage: UNK
     Route: 065

REACTIONS (6)
  - Pain [Unknown]
  - Skin burning sensation [Unknown]
  - Hypoaesthesia [Unknown]
  - Sleep disorder [Unknown]
  - Vision blurred [Unknown]
  - Pruritus [Unknown]
